FAERS Safety Report 21411967 (Version 2)
Quarter: 2022Q4

REPORT INFORMATION
  Report Type: Report from Study
  Country: CA (occurrence: CA)
  Receive Date: 20221005
  Receipt Date: 20221208
  Transmission Date: 20230113
  Serious: Yes (Hospitalization, Other)
  Sender: FDA-Public Use
  Company Number: CA-GILEAD-2022-0587097

PATIENT
  Age: 58 Year
  Sex: Female

DRUGS (9)
  1. SACITUZUMAB GOVITECAN [Suspect]
     Active Substance: SACITUZUMAB GOVITECAN
     Indication: Triple negative breast cancer
     Dosage: 461 MG CYCLE 1 DAYS 1 + 8
     Route: 042
     Dates: start: 20220518, end: 20220525
  2. SACITUZUMAB GOVITECAN [Suspect]
     Active Substance: SACITUZUMAB GOVITECAN
     Dosage: 461 MG CYCLE 2 DAYS 1 + 8
     Route: 042
     Dates: start: 20220615, end: 20220622
  3. SACITUZUMAB GOVITECAN [Suspect]
     Active Substance: SACITUZUMAB GOVITECAN
     Dosage: C5D1
     Route: 042
     Dates: start: 20220824
  4. SACITUZUMAB GOVITECAN [Suspect]
     Active Substance: SACITUZUMAB GOVITECAN
     Dosage: C6D1
     Route: 042
     Dates: start: 20220914
  5. SACITUZUMAB GOVITECAN [Suspect]
     Active Substance: SACITUZUMAB GOVITECAN
     Dosage: C10D1
     Route: 042
     Dates: start: 20221208
  6. XELODA [Concomitant]
     Active Substance: CAPECITABINE
  7. TAXOL [Concomitant]
     Active Substance: PACLITAXEL
  8. GEMCITABINE [Concomitant]
     Active Substance: GEMCITABINE
  9. CYCLOPHOSPHAMIDE\DOXORUBICIN [Concomitant]
     Active Substance: CYCLOPHOSPHAMIDE\DOXORUBICIN

REACTIONS (6)
  - Neutropenia [Unknown]
  - Pulmonary embolism [Not Recovered/Not Resolved]
  - Clostridium difficile colitis [Not Recovered/Not Resolved]
  - COVID-19 [Unknown]
  - Product dose omission issue [Unknown]
  - Inappropriate schedule of product administration [Unknown]

NARRATIVE: CASE EVENT DATE: 20220101
